FAERS Safety Report 19668867 (Version 1)
Quarter: 2021Q3

REPORT INFORMATION
  Report Type: Spontaneous
  Country: US (occurrence: US)
  Receive Date: 20210806
  Receipt Date: 20210806
  Transmission Date: 20211014
  Serious: No
  Sender: FDA-Public Use
  Company Number: US-SA-2021SA256065

PATIENT
  Age: 14 Year
  Sex: Female

DRUGS (1)
  1. DUPIXENT [Suspect]
     Active Substance: DUPILUMAB
     Indication: DERMATITIS ATOPIC
     Dosage: 350 MG, QOW
     Route: 058
     Dates: start: 202105

REACTIONS (2)
  - Psoriasis [Unknown]
  - Product use issue [Unknown]

NARRATIVE: CASE EVENT DATE: 202105
